FAERS Safety Report 13341298 (Version 1)
Quarter: 2017Q1

REPORT INFORMATION
  Report Type: Spontaneous
  Country: GB (occurrence: GB)
  Receive Date: 20170316
  Receipt Date: 20170316
  Transmission Date: 20170428
  Serious: Yes (Other)
  Sender: FDA-Public Use
  Company Number: PHHY2017GB035079

PATIENT
  Age: 60 Year
  Sex: Female
  Weight: 82.55 kg

DRUGS (6)
  1. DOXAZOSINE [Concomitant]
     Active Substance: DOXAZOSIN MESYLATE
     Indication: PRODUCT USED FOR UNKNOWN INDICATION
     Route: 065
  2. PARACETAMOL [Concomitant]
     Active Substance: ACETAMINOPHEN
     Indication: PRODUCT USED FOR UNKNOWN INDICATION
     Route: 065
  3. VANILLYLNONAMIDE [Concomitant]
     Indication: PRODUCT USED FOR UNKNOWN INDICATION
     Route: 065
  4. BENDROFLUMETHIAZIDE [Concomitant]
     Active Substance: BENDROFLUMETHIAZIDE
     Indication: PRODUCT USED FOR UNKNOWN INDICATION
     Route: 065
  5. OMEPRAZOL [Concomitant]
     Active Substance: OMEPRAZOLE
     Indication: PRODUCT USED FOR UNKNOWN INDICATION
     Route: 065
  6. CITALOPRAM [Suspect]
     Active Substance: CITALOPRAM HYDROBROMIDE
     Indication: ANTIDEPRESSANT THERAPY
     Dosage: 10 MG, UNK
     Route: 048
     Dates: start: 20170212

REACTIONS (12)
  - Hyperhidrosis [Not Recovered/Not Resolved]
  - Peripheral swelling [Recovered/Resolved]
  - Asthenia [Recovering/Resolving]
  - Nasal congestion [Recovering/Resolving]
  - Disturbance in attention [Not Recovered/Not Resolved]
  - Abnormal dreams [Not Recovered/Not Resolved]
  - Somnolence [Recovering/Resolving]
  - Malaise [Recovering/Resolving]
  - Decreased appetite [Not Recovered/Not Resolved]
  - Insomnia [Recovering/Resolving]
  - Mydriasis [Recovered/Resolved]
  - Mental fatigue [Not Recovered/Not Resolved]

NARRATIVE: CASE EVENT DATE: 20170212
